FAERS Safety Report 10196930 (Version 3)
Quarter: 2015Q2

REPORT INFORMATION
  Report Type: Spontaneous
  Country: JP (occurrence: JP)
  Receive Date: 20140527
  Receipt Date: 20150626
  Transmission Date: 20150821
  Serious: Yes (Death)
  Sender: FDA-Public Use
  Company Number: JP-UCBSA-121626

PATIENT
  Age: 60 Year
  Sex: Female

DRUGS (14)
  1. CELECOX [Concomitant]
     Active Substance: CELECOXIB
     Dosage: DAILY DOSE: 400 MG
     Route: 048
     Dates: start: 20120711, end: 20140424
  2. PREDNISOLONE. [Concomitant]
     Active Substance: PREDNISOLONE
     Dosage: DAILY DOSE: 3 MG
     Route: 048
     Dates: start: 20120711, end: 20140424
  3. KEPPRA [Suspect]
     Active Substance: LEVETIRACETAM
     Indication: EPILEPSY
     Dosage: STRENGTH: 500 MG
     Route: 048
     Dates: start: 20140416, end: 20140424
  4. UNASYN [Concomitant]
     Active Substance: AMPICILLIN SODIUM\SULBACTAM SODIUM
     Dosage: UNK
     Route: 048
     Dates: start: 20140423, end: 20140424
  5. PROGRAF [Concomitant]
     Active Substance: TACROLIMUS\TACROLIMUS ANHYDROUS
     Dosage: UNK
     Route: 048
     Dates: start: 20120711, end: 20140424
  6. AZULFIDINE EN-TABS [Concomitant]
     Active Substance: SULFASALAZINE
     Dosage: UNK
     Route: 048
     Dates: start: 20120711, end: 20140424
  7. DIAZEPAM. [Concomitant]
     Active Substance: DIAZEPAM
     Indication: SEIZURE
     Dosage: 10 MG/ 2ML, DOSE: 1 ML
     Route: 042
     Dates: start: 20140415
  8. NEXIUM [Concomitant]
     Active Substance: ESOMEPRAZOLE MAGNESIUM
     Dosage: DAILY DOSE: 20 MG
     Route: 048
     Dates: start: 20111219, end: 20140424
  9. DIAZEPAM. [Concomitant]
     Active Substance: DIAZEPAM
     Indication: SEIZURE
     Dosage: 10 MG, UNK
     Dates: start: 20140414
  10. BAKTAR [Concomitant]
     Active Substance: SULFAMETHOXAZOLE\TRIMETHOPRIM
     Dosage: UNK
     Route: 048
     Dates: start: 20131009, end: 20140424
  11. VFEND [Concomitant]
     Active Substance: VORICONAZOLE
     Dosage: DAILY DOSE : 200 MG
     Route: 048
     Dates: start: 20120711, end: 20140424
  12. DEPAKENE [Concomitant]
     Active Substance: VALPROIC ACID
     Route: 048
  13. ISCOTIN [Concomitant]
     Active Substance: ISONIAZID
     Dosage: DAILY DOSE: 300 MG
     Route: 048
     Dates: start: 201108, end: 20140424
  14. FOSPHENYTOIN SODIUM. [Concomitant]
     Active Substance: FOSPHENYTOIN SODIUM
     Dosage: INFUSION, 750 MG/10ML
     Route: 041
     Dates: start: 20140415

REACTIONS (1)
  - Cardio-respiratory arrest [Fatal]

NARRATIVE: CASE EVENT DATE: 20140425
